FAERS Safety Report 5619489-5 (Version None)
Quarter: 2008Q1

REPORT INFORMATION
  Report Type: 
  Country: None (occurrence: None)
  Receive Date: 20080114
  Receipt Date: 20071011
  Transmission Date: 20080703
  Serious: Yes (Other)
  Sender: FDA-Public Use
  Company Number: FEI2007-1801

PATIENT
  Age: 33 Year
  Sex: Female
  Weight: 106.5953 kg

DRUGS (2)
  1. PARAGARD T 380A [Suspect]
     Indication: CONTRACEPTION
     Dosage: INTRA-UTERINE
     Route: 015
     Dates: start: 20030101, end: 20071005
  2. LEVOXYL [Concomitant]

REACTIONS (2)
  - IUCD COMPLICATION [None]
  - IUD MIGRATION [None]
